FAERS Safety Report 8383027-7 (Version None)
Quarter: 2012Q2

REPORT INFORMATION
  Report Type: 
  Country: None (occurrence: None)
  Receive Date: 20120524
  Receipt Date: 20120518
  Transmission Date: 20120825
  Serious: Yes (Death)
  Sender: FDA-Public Use
  Company Number: US-FRI-1000030684

PATIENT
  Sex: Male

DRUGS (1)
  1. SAVELLA [Suspect]
     Dates: start: 20111001, end: 20120301

REACTIONS (2)
  - POISONING DELIBERATE [None]
  - COMPLETED SUICIDE [None]
